FAERS Safety Report 5212938-6 (Version None)
Quarter: 2007Q1

REPORT INFORMATION
  Report Type: 
  Country: None (occurrence: None)
  Receive Date: 20070117
  Receipt Date: 20070117
  Transmission Date: 20070707
  Serious: Yes (Other)
  Sender: FDA-Public Use
  Company Number: None

PATIENT
  Age: 74 Year
  Sex: Female
  Weight: 83 kg

DRUGS (1)
  1. DAPTOMYCIN [Suspect]
     Indication: ENDOCARDITIS
     Dosage: 480MG DAILY IV DRIP
     Route: 041

REACTIONS (1)
  - HOSPITALISATION [None]
